FAERS Safety Report 7887374-4 (Version None)
Quarter: 2011Q4

REPORT INFORMATION
  Report Type: 
  Country: None (occurrence: None)
  Receive Date: 20111102
  Receipt Date: 20110719
  Transmission Date: 20120403
  Serious: No
  Sender: FDA-Public Use
  Company Number: US-AMGEN-USASP2011036627

PATIENT
  Age: 20 Year
  Sex: Female
  Weight: 48 kg

DRUGS (7)
  1. LEVEMIR [Concomitant]
     Dosage: UNK
  2. METHOTREXATE [Concomitant]
     Dosage: UNK
  3. PREDNISONE [Concomitant]
     Dosage: UNK
  4. HUMALOG [Concomitant]
     Dosage: UNK
  5. FOLIC ACID [Concomitant]
     Dosage: 1 MG, UNK
  6. IRON [Concomitant]
     Dosage: 325 MG, UNK
  7. ENBREL [Suspect]
     Indication: PRODUCT USED FOR UNKNOWN INDICATION
     Dosage: 50 MG, QWK
     Route: 058

REACTIONS (4)
  - INJECTION SITE ERYTHEMA [None]
  - TENDERNESS [None]
  - HEADACHE [None]
  - INJECTION SITE REACTION [None]
